FAERS Safety Report 20808098 (Version 2)
Quarter: 2022Q3

REPORT INFORMATION
  Report Type: Report from Study
  Country: AT (occurrence: AT)
  Receive Date: 20220510
  Receipt Date: 20220816
  Transmission Date: 20221026
  Serious: Yes (Hospitalization)
  Sender: FDA-Public Use
  Company Number: AT-BRISTOL-MYERS SQUIBB COMPANY-2022-035745

PATIENT
  Age: 79 Year
  Sex: Female
  Weight: 59 kg

DRUGS (29)
  1. LENALIDOMIDE [Suspect]
     Active Substance: LENALIDOMIDE
     Indication: Plasma cell myeloma
     Route: 048
     Dates: start: 20161122, end: 20190702
  2. DEXAMETHASONE [Suspect]
     Active Substance: DEXAMETHASONE
     Indication: Plasma cell myeloma
     Dosage: 40 MG, DAY 1 ,8, 15, 22
     Route: 048
     Dates: start: 20161122
  3. DEXAMETHASONE [Suspect]
     Active Substance: DEXAMETHASONE
     Dosage: DAY 1, 8, 15, 22 (12 MG,1 IN 4 WK)
     Route: 048
     Dates: end: 20190703
  4. METOPROLOL TARTRATE [Concomitant]
     Active Substance: METOPROLOL TARTRATE
     Indication: Hypertension
     Route: 048
  5. SIMVASTATIN [Concomitant]
     Active Substance: SIMVASTATIN
     Indication: Hypercholesterolaemia
     Route: 048
  6. RAMIPRIL [Concomitant]
     Active Substance: RAMIPRIL
     Indication: Hypertension
     Route: 048
  7. PANTOPRAZOLE [Concomitant]
     Active Substance: PANTOPRAZOLE
     Indication: Gastric ulcer
     Dosage: AS NECESSARY
     Route: 048
  8. FUROSEMIDE [Concomitant]
     Active Substance: FUROSEMIDE
     Indication: Oedema
     Dosage: AS NECESSARY
     Route: 048
  9. CALCIDURAN [ASCORBIC ACID;CALCIUM PHOSPHATE DIBASIC;COLECALCIFEROL] [Concomitant]
     Indication: Osteoporosis
     Route: 048
     Dates: start: 20161114
  10. TRAMADOL [Concomitant]
     Active Substance: TRAMADOL
     Indication: Pain
     Dosage: AS NECESSARY
     Route: 048
     Dates: start: 20161114
  11. CHOLECALCIFEROL [Concomitant]
     Active Substance: CHOLECALCIFEROL
     Indication: Osteolysis
     Route: 048
     Dates: start: 20161129
  12. ZOLEDRONIC ACID [Concomitant]
     Active Substance: ZOLEDRONIC ACID
     Indication: Osteolysis
     Route: 042
     Dates: start: 20161206
  13. MAGNESIUM VERLA [MAGNESIUM] [Concomitant]
     Indication: Hypomagnesaemia
     Route: 048
     Dates: start: 20180123
  14. ERYTHROPOIETIN [Concomitant]
     Active Substance: ERYTHROPOIETIN
     Indication: Anaemia
     Route: 058
     Dates: start: 20180220
  15. SILVER SULFADIAZINE [Concomitant]
     Active Substance: SILVER SULFADIAZINE
     Indication: Skin ulcer
     Route: 061
     Dates: start: 20171114
  16. VALACYCLOVIR HYDROCHLORIDE [Concomitant]
     Active Substance: VALACYCLOVIR HYDROCHLORIDE
     Indication: Herpes zoster
     Route: 048
     Dates: start: 20180417
  17. TRAMADOL [Concomitant]
     Active Substance: TRAMADOL
     Indication: Skin ulcer
     Route: 048
     Dates: start: 20180417
  18. SOLCOSERYL [Concomitant]
     Active Substance: SOLCOSERYL
     Indication: Gingivitis
     Dosage: AS NECESSARY
     Route: 061
     Dates: start: 20180515
  19. CANRENOATE POTASSIUM [Concomitant]
     Active Substance: CANRENOATE POTASSIUM
     Indication: Hypokalaemia
     Dosage: 1 SACHET (DAILY)
     Route: 048
     Dates: start: 20180807
  20. CANRENOATE POTASSIUM [Concomitant]
     Active Substance: CANRENOATE POTASSIUM
     Dosage: 1 SACHET (2 IN 1 D)
     Route: 048
     Dates: start: 20181119
  21. CANRENOATE POTASSIUM [Concomitant]
     Active Substance: CANRENOATE POTASSIUM
     Dosage: 1 SACHET (2 IN 1 D)
     Route: 048
     Dates: start: 20181130
  22. SODIUM BICARBONATE [Concomitant]
     Active Substance: SODIUM BICARBONATE
     Indication: Fanconi syndrome
     Route: 048
     Dates: start: 20180727
  23. BETAMETHASONE [Concomitant]
     Active Substance: BETAMETHASONE
     Indication: Skin ulcer
     Dosage: AS NECESSARY
     Route: 061
     Dates: start: 20180427
  24. SOLCOSERYL [Concomitant]
     Active Substance: SOLCOSERYL
     Indication: Stomatitis
     Route: 061
     Dates: start: 20180904
  25. PASPERTIN [METOCLOPRAMIDE;POLIDOCANOL] [Concomitant]
     Indication: Nausea
     Dosage: AS NECESSARY
     Route: 048
     Dates: start: 20181004
  26. GLANDOMED [Concomitant]
     Indication: Aphthous ulcer
     Route: 048
     Dates: start: 20181002
  27. PYRALVEX [RHEUM SPP.;SALICYLIC ACID] [Concomitant]
     Indication: Aphthous ulcer
     Dosage: AS NECESSARY
     Route: 048
     Dates: start: 20181002
  28. PRADAXA [Concomitant]
     Active Substance: DABIGATRAN ETEXILATE MESYLATE
     Indication: Thrombosis prophylaxis
     Route: 048
     Dates: start: 20181130
  29. FILGRASTIM [Concomitant]
     Active Substance: FILGRASTIM
     Indication: Leukopenia
     Route: 058
     Dates: start: 20190709

REACTIONS (1)
  - Transaminases increased [Recovered/Resolved]

NARRATIVE: CASE EVENT DATE: 20190709
